FAERS Safety Report 25445076 (Version 1)
Quarter: 2025Q2

REPORT INFORMATION
  Report Type: Spontaneous
  Country: US (occurrence: None)
  Receive Date: 20250616
  Receipt Date: 20250616
  Transmission Date: 20250716
  Serious: Yes (Hospitalization)
  Sender: FDA-CTU
  Company Number: None

PATIENT
  Age: 55 Year
  Sex: Male
  Weight: 74.9 kg

DRUGS (14)
  1. TACROLIMUS [Suspect]
     Active Substance: TACROLIMUS
     Dosage: 0.5 MG TWICE A DAY ORAL ?
     Route: 048
     Dates: start: 20250521
  2. CARVEDILOL [Concomitant]
     Active Substance: CARVEDILOL
  3. PANTOPRAZOLE SODIUM [Concomitant]
     Active Substance: PANTOPRAZOLE SODIUM
  4. Vitamin D3 50mcg [Concomitant]
  5. CLONIDINE [Concomitant]
     Active Substance: CLONIDINE
  6. Aripiprazole 20mg [Concomitant]
  7. PREDNISONE [Concomitant]
     Active Substance: PREDNISONE
  8. CLOPIDOGREL [Concomitant]
     Active Substance: CLOPIDOGREL BISULFATE
  9. AMLODIPINE [Concomitant]
     Active Substance: AMLODIPINE BESYLATE
  10. TACROLIMUS [Concomitant]
     Active Substance: TACROLIMUS
  11. FLUVOXAMINE [Concomitant]
     Active Substance: FLUVOXAMINE
  12. LEVETIRACETAM [Concomitant]
     Active Substance: LEVETIRACETAM
  13. LAMOTRIGINE [Concomitant]
     Active Substance: LAMOTRIGINE
  14. ASPIRIN [Concomitant]
     Active Substance: ASPIRIN

REACTIONS (2)
  - Fall [None]
  - Head injury [None]

NARRATIVE: CASE EVENT DATE: 20250501
